FAERS Safety Report 17722626 (Version 1)
Quarter: 2020Q2

REPORT INFORMATION
  Report Type: Spontaneous
  Country: US (occurrence: US)
  Receive Date: 20200428
  Receipt Date: 20200428
  Transmission Date: 20200714
  Serious: Yes (Death)
  Sender: FDA-Public Use
  Company Number: None

PATIENT
  Age: 38 Year
  Sex: Male

DRUGS (3)
  1. ZENPEP 25, 000 UNITS [Concomitant]
  2. ALBUTEROL 0.083% NEBULIZER SOLUTION [Concomitant]
  3. KALYDECO [Suspect]
     Active Substance: IVACAFTOR
     Route: 048
     Dates: start: 20190618, end: 20200201

REACTIONS (1)
  - Death [None]

NARRATIVE: CASE EVENT DATE: 20200201
